FAERS Safety Report 10640836 (Version 1)
Quarter: 2014Q4

REPORT INFORMATION
  Report Type: Spontaneous
  Country: CN (occurrence: None)
  Receive Date: 20141205
  Receipt Date: 20141205
  Transmission Date: 20150529
  Serious: Yes (Hospitalization)
  Sender: FDA-Public Use
  Company Number: CN-2014-4588

PATIENT
  Age: 47 Year
  Sex: Male
  Weight: 51 kg

DRUGS (2)
  1. OXALIPLATIN (OXALIPLATIN) [Concomitant]
     Active Substance: OXALIPLATIN
  2. NAVELBINE [Suspect]
     Active Substance: VINORELBINE TARTRATE
     Indication: OESOPHAGEAL DISORDER
     Dosage: DAY 01
     Route: 042
     Dates: start: 20141120

REACTIONS (5)
  - Chest discomfort [None]
  - Asthenia [None]
  - Shock [None]
  - Dizziness [None]
  - Chest pain [None]

NARRATIVE: CASE EVENT DATE: 20141120
